FAERS Safety Report 8249842 (Version 5)
Quarter: 2012Q4

REPORT INFORMATION
  Report Type: 
  Country: US (occurrence: US)
  Receive Date: 20111117
  Receipt Date: 20120926
  Transmission Date: 20130627
  Serious: Yes (Hospitalization, Other)
  Sender: FDA-Public Use
  Company Number: US-ASTRAZENECA-2010SE37063

PATIENT
  Age: 63 Year
  Sex: Male
  Weight: 70.3 kg

DRUGS (14)
  1. SYMBICORT PMDI [Suspect]
     Indication: CHRONIC OBSTRUCTIVE PULMONARY DISEASE
     Dosage: 320 MCG: 160/4.5 MCG,TWO TIMES A DAY
     Route: 055
     Dates: start: 2008
  2. NEXIUM [Suspect]
     Indication: GASTROOESOPHAGEAL REFLUX DISEASE
     Route: 048
     Dates: start: 2005
  3. LISINOPRIL [Concomitant]
     Route: 048
  4. OMEPRAZOLE [Concomitant]
     Route: 048
  5. ALBUTEROL [Concomitant]
  6. PROVENTIL [Concomitant]
  7. CYCLOBENZAPRINE [Concomitant]
  8. TRAZODONE [Concomitant]
  9. PRAVASTATIN [Concomitant]
  10. FLUOXETINE [Concomitant]
  11. FAMOTIDINE [Concomitant]
  12. METFORMIN [Concomitant]
  13. ADVAIR [Concomitant]
  14. SPIRIVA [Concomitant]

REACTIONS (5)
  - Head and neck cancer [Unknown]
  - Neoplasm malignant [Unknown]
  - Tonsil cancer [Unknown]
  - White blood cell count decreased [Recovering/Resolving]
  - Dyspepsia [Unknown]
